FAERS Safety Report 8417105 (Version 2)
Quarter: 2012Q4

REPORT INFORMATION
  Report Type: 
  Country: BR (occurrence: BR)
  Receive Date: 20120220
  Receipt Date: 20121008
  Transmission Date: 20130627
  Serious: Yes (Hospitalization)
  Sender: FDA-Public Use
  Company Number: BR-ASTRAZENECA-2012SE09905

PATIENT
  Age: 74 Year
  Sex: Female
  Weight: 70 kg

DRUGS (8)
  1. SELOZOK [Suspect]
     Indication: ARRHYTHMIA
     Route: 048
     Dates: start: 2006
  2. SELOZOK [Suspect]
     Indication: HYPERTENSION
     Route: 048
     Dates: start: 2006
  3. CRESTOR [Suspect]
     Indication: BLOOD CHOLESTEROL INCREASED
     Route: 048
     Dates: start: 2008, end: 20120209
  4. CRESTOR [Suspect]
     Indication: BLOOD CHOLESTEROL INCREASED
     Route: 048
  5. ANCORON [Concomitant]
     Indication: ARRHYTHMIA
     Route: 048
     Dates: start: 2006
  6. PLAGREL [Concomitant]
     Indication: ARRHYTHMIA
     Route: 048
     Dates: start: 2006, end: 2012
  7. DIOVAN [Concomitant]
     Indication: HYPERTENSION
     Route: 048
     Dates: start: 2006
  8. LEXOTAN [Concomitant]
     Indication: INSOMNIA
     Route: 048
     Dates: start: 2009

REACTIONS (5)
  - Cerebrovascular accident [Recovered/Resolved with Sequelae]
  - Arrhythmia [Recovered/Resolved]
  - Tremor [Not Recovered/Not Resolved]
  - Arrhythmia [Unknown]
  - Drug ineffective [Unknown]
